FAERS Safety Report 18526350 (Version 1)
Quarter: 2020Q4

REPORT INFORMATION
  Report Type: Spontaneous
  Country: PL (occurrence: PL)
  Receive Date: 20201120
  Receipt Date: 20201120
  Transmission Date: 20210114
  Serious: Yes (Other)
  Sender: FDA-Public Use
  Company Number: PL-ACCORD-202010

PATIENT
  Age: 62 Year
  Sex: Male

DRUGS (2)
  1. CISPLATIN. [Suspect]
     Active Substance: CISPLATIN
     Indication: SQUAMOUS CELL CARCINOMA OF LUNG
     Dosage: REDUCE THE DOSES AND ENDED HIS TREATMENT IN DEC-2016
     Dates: start: 2016, end: 201612
  2. VINORELBINE [Suspect]
     Active Substance: VINORELBINE TARTRATE
     Indication: SQUAMOUS CELL CARCINOMA OF LUNG
     Dosage: REDUCE THE DOSES AND ENDED HIS TREATMENT IN DEC-2016
     Dates: start: 2016, end: 201612

REACTIONS (2)
  - Therapy partial responder [Unknown]
  - Anaemia [Unknown]

NARRATIVE: CASE EVENT DATE: 2016
